FAERS Safety Report 10038425 (Version 3)
Quarter: 2014Q2

REPORT INFORMATION
  Report Type: Spontaneous
  Country: US (occurrence: US)
  Receive Date: 20140326
  Receipt Date: 20140512
  Transmission Date: 20141212
  Serious: No
  Sender: FDA-Public Use
  Company Number: US-009507513-1403USA007326

PATIENT
  Age: 70 Year
  Sex: Female

DRUGS (1)
  1. OXYTROL FOR WOMEN [Suspect]
     Indication: INCONTINENCE
     Dosage: 1 DF, Q4D
     Route: 062
     Dates: start: 20140206, end: 201403

REACTIONS (5)
  - Application site burn [Not Recovered/Not Resolved]
  - Blister [Recovered/Resolved]
  - Burning sensation [Recovered/Resolved]
  - Pruritus [Unknown]
  - Erythema [Recovering/Resolving]
